FAERS Safety Report 8802451 (Version 2)
Quarter: 2012Q4

REPORT INFORMATION
  Report Type: 
  Country: US (occurrence: US)
  Receive Date: 20120921
  Receipt Date: 20121008
  Transmission Date: 20130627
  Serious: Yes (Other)
  Sender: FDA-Public Use
  Company Number: US-ASTRAZENECA-2012SE72089

PATIENT
  Age: 74 Year
  Sex: Female

DRUGS (3)
  1. NEXIUM [Suspect]
     Route: 048
  2. CREON [Concomitant]
  3. OXYCONTIN [Concomitant]

REACTIONS (8)
  - Pain [Unknown]
  - Dysphagia [Unknown]
  - Adverse event [Unknown]
  - Feeling abnormal [Unknown]
  - Diabetes mellitus [Unknown]
  - Malaise [Unknown]
  - Pancreatic carcinoma [Unknown]
  - Thrombosis [Unknown]
